FAERS Safety Report 9740936 (Version 1)
Quarter: 2013Q4

REPORT INFORMATION
  Report Type: Spontaneous
  Country: US (occurrence: US)
  Receive Date: 20131209
  Receipt Date: 20131209
  Transmission Date: 20140711
  Serious: No
  Sender: FDA-Public Use
  Company Number: US-BIOGENIDEC-2013BI100462

PATIENT
  Sex: Male

DRUGS (11)
  1. TECFIDERA [Suspect]
     Indication: MULTIPLE SCLEROSIS
     Route: 048
     Dates: start: 20130909
  2. ABILIFY [Concomitant]
  3. BACLOFEN [Concomitant]
  4. CLONAZEPAM [Concomitant]
  5. FISH OIL [Concomitant]
  6. LISINOPRIL [Concomitant]
  7. PRIMIDONE [Concomitant]
  8. SIMVASTATIN [Concomitant]
  9. TRICOR [Concomitant]
  10. VITAMIN D3 [Concomitant]
  11. WELLBUTRIN [Concomitant]

REACTIONS (1)
  - Diarrhoea [Unknown]
